FAERS Safety Report 23523231 (Version 1)
Quarter: 2024Q1

REPORT INFORMATION
  Report Type: Report from Study
  Country: US (occurrence: None)
  Receive Date: 20240214
  Receipt Date: 20240214
  Transmission Date: 20240409
  Serious: Yes (Other)
  Sender: FDA-Public Use
  Company Number: 2024A033420

PATIENT
  Age: 681 Month
  Sex: Female

DRUGS (3)
  1. TAGRISSO [Suspect]
     Active Substance: OSIMERTINIB
     Indication: Non-small cell lung cancer
     Route: 048
     Dates: start: 2021, end: 202311
  2. TAGRISSO [Suspect]
     Active Substance: OSIMERTINIB
     Indication: Non-small cell lung cancer
     Route: 048
     Dates: start: 20240114
  3. KEYTRUDA [Suspect]
     Active Substance: PEMBROLIZUMAB

REACTIONS (9)
  - Clostridium difficile infection [Unknown]
  - Gastric haemorrhage [Unknown]
  - Kidney fibrosis [Unknown]
  - Gastrointestinal disorder [Not Recovered/Not Resolved]
  - Flatulence [Not Recovered/Not Resolved]
  - Arthralgia [Unknown]
  - Pain [Unknown]
  - Abdominal pain upper [Unknown]
  - Bladder pain [Unknown]

NARRATIVE: CASE EVENT DATE: 20231101
